FAERS Safety Report 24725101 (Version 2)
Quarter: 2024Q4

REPORT INFORMATION
  Report Type: Spontaneous
  Country: CH (occurrence: CH)
  Receive Date: 20241212
  Receipt Date: 20241216
  Transmission Date: 20250115
  Serious: Yes (Death, Life-Threatening, Hospitalization, Other)
  Sender: ASTELLAS
  Company Number: None

PATIENT
  Age: 75 Year
  Sex: Female
  Weight: 82 kg

DRUGS (3)
  1. PADCEV [Suspect]
     Active Substance: ENFORTUMAB VEDOTIN\ENFORTUMAB VEDOTIN-EJFV
     Indication: Transitional cell carcinoma metastatic
     Route: 042
     Dates: start: 20241018
  2. PEMBROLIZUMAB [Suspect]
     Active Substance: PEMBROLIZUMAB
     Indication: Transitional cell carcinoma metastatic
     Route: 042
     Dates: start: 20241018
  3. AMLODIPINE BESYLATE\OLMESARTAN MEDOXOMIL [Concomitant]
     Active Substance: AMLODIPINE BESYLATE\OLMESARTAN MEDOXOMIL
     Indication: Product used for unknown indication
     Dosage: 1DF, 24 (AS REPORTED)?40/10 MG
     Route: 048
     Dates: start: 20241101

REACTIONS (7)
  - Hepatitis [Fatal]
  - Myocarditis [Fatal]
  - Pneumonitis [Fatal]
  - Acute myocardial infarction [Fatal]
  - Pulmonary oedema [Fatal]
  - Paraneoplastic syndrome [Fatal]
  - Cholangitis [Recovered/Resolved]

NARRATIVE: CASE EVENT DATE: 20241101
